FAERS Safety Report 19440888 (Version 1)
Quarter: 2021Q2

REPORT INFORMATION
  Report Type: Report from Study
  Country: US (occurrence: US)
  Receive Date: 20210621
  Receipt Date: 20210621
  Transmission Date: 20210717
  Serious: Yes (Other)
  Sender: FDA-Public Use
  Company Number: NVSC2021US129962

PATIENT
  Sex: Male

DRUGS (1)
  1. COSENTYX [Suspect]
     Active Substance: SECUKINUMAB
     Indication: PRODUCT USED FOR UNKNOWN INDICATION
     Dosage: 150 MG, QMO
     Route: 058

REACTIONS (11)
  - Cataract [Unknown]
  - Inflammation [Unknown]
  - Dysstasia [Unknown]
  - Gait disturbance [Unknown]
  - Limb deformity [Unknown]
  - Chondropathy [Unknown]
  - Cervical vertebral fracture [Unknown]
  - Mobility decreased [Unknown]
  - Nerve injury [Unknown]
  - Irritability [Unknown]
  - Product dose omission issue [Unknown]
